FAERS Safety Report 6935912-8 (Version None)
Quarter: 2010Q3

REPORT INFORMATION
  Report Type: 
  Country: None (occurrence: None)
  Receive Date: 20100823
  Receipt Date: 20100721
  Transmission Date: 20110219
  Serious: No
  Sender: FDA-Public Use
  Company Number: US-BAYER-201018688BCC

PATIENT
  Age: 58 Year
  Sex: Female
  Weight: 70 kg

DRUGS (11)
  1. ALEVE (CAPLET) [Suspect]
     Indication: INFLUENZA LIKE ILLNESS
     Dosage: TOTAL DAILY DOSE: 220 MG  UNIT DOSE: 220 MG
     Route: 048
     Dates: start: 20100720
  2. AVONEX [Concomitant]
     Route: 065
  3. GREEN TEA EXTRACT [Concomitant]
     Route: 065
  4. VITAMIN B-12 [Concomitant]
     Route: 065
  5. VITAMIN D3 [Concomitant]
     Route: 065
  6. CO Q10 [Concomitant]
     Route: 065
  7. L-CARNITINE [Concomitant]
     Route: 065
  8. ALPHA LIPOIC ACID [Concomitant]
     Route: 065
  9. PB 8 ACIDOPHILUS [Concomitant]
     Route: 065
  10. LIPOFLAVONOID [Concomitant]
     Route: 065
  11. LOVAZA [Concomitant]
     Route: 065

REACTIONS (1)
  - DYSGEUSIA [None]
